FAERS Safety Report 7732784-9 (Version None)
Quarter: 2011Q3

REPORT INFORMATION
  Report Type: 
  Country: None (occurrence: None)
  Receive Date: 20110907
  Receipt Date: 20110823
  Transmission Date: 20111222
  Serious: No
  Sender: FDA-Public Use
  Company Number: US-JNJFOC-20110812903

PATIENT
  Sex: Male
  Weight: 111.13 kg

DRUGS (4)
  1. DURAGESIC-100 [Suspect]
     Indication: NEUROPATHY PERIPHERAL
     Dosage: 100MCG+50MCG
     Route: 062
     Dates: start: 20110501
  2. ATENOLOL [Concomitant]
     Indication: CARDIAC DISORDER
     Route: 048
  3. NEXIUM [Concomitant]
     Indication: GASTROOESOPHAGEAL REFLUX DISEASE
     Route: 048
  4. NORVASC [Concomitant]
     Indication: CARDIAC DISORDER
     Route: 048

REACTIONS (2)
  - WRONG TECHNIQUE IN DRUG USAGE PROCESS [None]
  - PRODUCT QUALITY ISSUE [None]
